FAERS Safety Report 7583940-4 (Version None)
Quarter: 2011Q2

REPORT INFORMATION
  Report Type: 
  Country: None (occurrence: None)
  Receive Date: 20110630
  Receipt Date: 20110627
  Transmission Date: 20111010
  Serious: Yes (Life-Threatening, Hospitalization, Other)
  Sender: FDA-Public Use
  Company Number: US-ELI_LILLY_AND_COMPANY-US201002003767

PATIENT
  Sex: Male
  Weight: 117.91 kg

DRUGS (35)
  1. FLOMAX [Concomitant]
     Dosage: 0.4 MG, EACH EVENING
  2. METOLAZONE [Concomitant]
     Dosage: 5 MG, UNK
  3. TRICOR [Concomitant]
     Dosage: 145 MG, QD
  4. LANOXIN [Concomitant]
  5. NITROL [Concomitant]
  6. TPN [Concomitant]
  7. FLUCONAZOLE [Concomitant]
     Dosage: 300 MG, QD
  8. BYETTA [Suspect]
     Dosage: UNK, UNKNOWN
     Route: 065
     Dates: start: 20061001, end: 20081001
  9. LASIX [Concomitant]
     Dosage: UNK
     Dates: start: 20050101
  10. AMARYL [Concomitant]
     Dosage: 4 MG, QD
  11. REGLAN [Concomitant]
  12. FENTANYL [Concomitant]
  13. MAGNESIUM [Concomitant]
     Dosage: 400 MG, DAILY (1/D)
  14. HYDRALAZINE HCL [Concomitant]
     Dosage: 50 MG, TID
  15. LOVENOX [Concomitant]
  16. COREG [Concomitant]
  17. BACTROBAN                               /NET/ [Concomitant]
  18. LISINOPRIL [Concomitant]
     Dosage: UNK
     Dates: start: 19870108
  19. CATAPRES                                /UNK/ [Concomitant]
  20. VANCOMYCIN HCL [Concomitant]
     Dosage: 1.7 G, QD
  21. VITAMIN B-12 [Concomitant]
     Dosage: 1000 MG, DAILY (1/D)
  22. ASCORBIC ACID [Concomitant]
  23. LIPITOR [Concomitant]
     Dosage: 10 MG, QD
  24. LORTAB [Concomitant]
  25. TICLID [Concomitant]
  26. NORVASC [Concomitant]
     Dosage: 5 MG, DAILY (1/D)
  27. PLAVIX [Concomitant]
     Dosage: 75 MG, QD
  28. IMDUR [Concomitant]
  29. LANTUS [Concomitant]
     Dosage: 30 UNK, UNK
  30. ASPIRIN [Concomitant]
     Dosage: 325 MG, UNK
  31. AMIODARONE HCL [Concomitant]
     Dosage: 200 MG, DAILY (1/D)
  32. POTASSIUM [Concomitant]
     Dosage: 20 MEQ, DAILY (1/D)
  33. APRESOLINE [Concomitant]
  34. ZOSYN [Concomitant]
  35. NEXIUM [Concomitant]

REACTIONS (9)
  - PANCREATITIS NECROTISING [None]
  - RESPIRATORY FAILURE [None]
  - MULTI-ORGAN FAILURE [None]
  - SEPSIS [None]
  - RESPIRATORY DISTRESS [None]
  - RENAL FAILURE CHRONIC [None]
  - OFF LABEL USE [None]
  - PNEUMONIA [None]
  - ATRIAL FIBRILLATION [None]
